FAERS Safety Report 10932112 (Version 1)
Quarter: 2015Q1

REPORT INFORMATION
  Report Type: Spontaneous
  Country: US (occurrence: None)
  Receive Date: 20150212
  Receipt Date: 20150212
  Transmission Date: 20150721
  Serious: Yes (Hospitalization)
  Sender: FDA-Public Use
  Company Number: TPA2010A06315

PATIENT
  Age: 54 Year
  Sex: Male

DRUGS (1)
  1. ULORIC [Suspect]
     Active Substance: FEBUXOSTAT
     Indication: GOUT
     Dosage: 1 IN 1 D
     Dates: start: 2010, end: 2010

REACTIONS (2)
  - Myocardial infarction [None]
  - Arterial occlusive disease [None]

NARRATIVE: CASE EVENT DATE: 2010
